FAERS Safety Report 19250771 (Version 1)
Quarter: 2021Q2

REPORT INFORMATION
  Report Type: Spontaneous
  Country: US (occurrence: US)
  Receive Date: 20210513
  Receipt Date: 20210513
  Transmission Date: 20210717
  Serious: No
  Sender: FDA-Public Use
  Company Number: US-TEVA-2021-US-1906264

PATIENT
  Age: 73 Year
  Sex: Female

DRUGS (1)
  1. ETHAMBUTOL TEVA [Suspect]
     Active Substance: ETHAMBUTOL HYDROCHLORIDE
     Route: 065
     Dates: start: 202009

REACTIONS (3)
  - Rash [Unknown]
  - Feeling abnormal [Unknown]
  - Product substitution issue [Unknown]
